FAERS Safety Report 25900698 (Version 1)
Quarter: 2025Q4

REPORT INFORMATION
  Report Type: Spontaneous
  Country: EU (occurrence: EU)
  Receive Date: 20251009
  Receipt Date: 20251009
  Transmission Date: 20260117
  Serious: Yes (Other)
  Sender: AUROBINDO
  Company Number: EU-SUN PHARMACEUTICAL INDUSTRIES LTD-2021R1-277975

PATIENT
  Age: 84 Year
  Sex: Male
  Weight: 83 kg

DRUGS (4)
  1. PERINDOPRIL [Suspect]
     Active Substance: PERINDOPRIL
     Indication: Hypertension
     Dosage: 2.5 MILLIGRAM, DAILY
     Route: 065
  2. METOPROLOL [Suspect]
     Active Substance: METOPROLOL
     Indication: Arrhythmia
     Dosage: 25 MILLIGRAM, DAILY
     Route: 065
  3. METOPROLOL [Suspect]
     Active Substance: METOPROLOL
     Dosage: 50 MILLIGRAM, DAILY
     Route: 065
  4. INDAPAMIDE [Suspect]
     Active Substance: INDAPAMIDE
     Indication: Hypertension
     Dosage: 1.25 MILLIGRAM, DAILY (1 TABLET)
     Route: 065

REACTIONS (3)
  - Hypotension [Recovered/Resolved]
  - Seizure [Unknown]
  - Syncope [Unknown]
